FAERS Safety Report 8519471-4 (Version None)
Quarter: 2012Q3

REPORT INFORMATION
  Report Type: 
  Country: None (occurrence: None)
  Receive Date: 20120718
  Receipt Date: 20120713
  Transmission Date: 20120928
  Serious: No
  Sender: FDA-Public Use
  Company Number: US-PFIZER INC-2012151072

PATIENT
  Sex: Male

DRUGS (2)
  1. CELEBREX [Suspect]
     Dosage: 200 MG, 1X/DAY
  2. CRESTOR [Concomitant]
     Dosage: UNK

REACTIONS (4)
  - PRODUCT COUNTERFEIT [None]
  - ARTHROPATHY [None]
  - PRODUCT PACKAGING ISSUE [None]
  - ARTHRITIS [None]
